FAERS Safety Report 18666198 (Version 1)
Quarter: 2020Q4

REPORT INFORMATION
  Report Type: Spontaneous
  Country: US (occurrence: US)
  Receive Date: 20201226
  Receipt Date: 20201226
  Transmission Date: 20210114
  Serious: No
  Sender: FDA-Public Use
  Company Number: US-009507513-2012USA010985

PATIENT
  Sex: Male

DRUGS (2)
  1. SINGULAIR [Suspect]
     Active Substance: MONTELUKAST SODIUM
     Dosage: 10 PILLS AN HOUR
     Route: 048
  2. SINGULAIR [Suspect]
     Active Substance: MONTELUKAST SODIUM
     Indication: RHINORRHOEA
     Dosage: 1 DOSAGE FORM, QD, FOR THREE DAYS
     Route: 048

REACTIONS (4)
  - Intentional overdose [Unknown]
  - Adverse event [Unknown]
  - Therapeutic response unexpected [Unknown]
  - Product prescribing issue [Unknown]
